FAERS Safety Report 25664206 (Version 4)
Quarter: 2025Q4

REPORT INFORMATION
  Report Type: Report from Study
  Country: US (occurrence: US)
  Receive Date: 20250811
  Receipt Date: 20251028
  Transmission Date: 20260117
  Serious: Yes (Other)
  Sender: SUNOVION
  Company Number: US-SUMITOMO PHARMA SWITZERLAND GMBH-2025SPA002390

PATIENT
  Age: 82 Year
  Sex: Male

DRUGS (8)
  1. ORGOVYX [Suspect]
     Active Substance: RELUGOLIX
     Indication: Prostate cancer
     Dosage: 360 MG, SINGLE
     Route: 048
  2. ORGOVYX [Suspect]
     Active Substance: RELUGOLIX
     Dosage: 120 MG, QD
     Route: 048
     Dates: start: 20250211
  3. XTANDI [Suspect]
     Active Substance: ENZALUTAMIDE
     Indication: Prostate cancer
     Dosage: 1 DF, QD DECREASED TO ONE PILL A DAY
  4. XTANDI [Suspect]
     Active Substance: ENZALUTAMIDE
     Dosage: 80 MG, BID
     Route: 048
  5. XTANDI [Suspect]
     Active Substance: ENZALUTAMIDE
     Dosage: 80 MG, QD
     Dates: start: 20250209
  6. XTANDI [Suspect]
     Active Substance: ENZALUTAMIDE
     Dosage: UNK (WAS TAKING 2 XTANDI TABLETS BUT DECARESED
  7. ADDERALL [Suspect]
     Active Substance: AMPHETAMINE ASPARTATE\AMPHETAMINE SULFATE\DEXTROAMPHETAMINE SACCHARATE\DEXTROAMPHETAMINE SULFATE
     Indication: Product used for unknown indication
     Dosage: UNK
  8. HERBALS\SPIRULINA [Concomitant]
     Active Substance: HERBALS\SPIRULINA

REACTIONS (17)
  - Diarrhoea [Unknown]
  - Fall [Unknown]
  - Lethargy [Unknown]
  - Skin neoplasm excision [Unknown]
  - Upper limb fracture [Unknown]
  - Blood pressure increased [Unknown]
  - Fatigue [Not Recovered/Not Resolved]
  - Nausea [Unknown]
  - Asthenia [Not Recovered/Not Resolved]
  - Muscle spasms [Unknown]
  - Apathy [Unknown]
  - Gait disturbance [Unknown]
  - Procedural pain [Unknown]
  - Muscular weakness [Unknown]
  - Fear of falling [Unknown]
  - Peripheral swelling [Unknown]
  - Urinary tract infection [Unknown]
